FAERS Safety Report 6444292-6 (Version None)
Quarter: 2009Q4

REPORT INFORMATION
  Report Type: 
  Country: None (occurrence: None)
  Receive Date: 20091116
  Receipt Date: 20091116
  Transmission Date: 20100525
  Serious: Yes (Other)
  Sender: FDA-Public Use
  Company Number: None

PATIENT
  Sex: Female
  Weight: 54.5 kg

DRUGS (1)
  1. LOESTRIN 24 FE [Suspect]
     Indication: ENDOMETRIOSIS
     Dosage: 1 DAILY ORAL
     Route: 048
     Dates: start: 20090601, end: 20091001

REACTIONS (1)
  - RASH [None]
